FAERS Safety Report 8098911-1 (Version None)
Quarter: 2012Q1

REPORT INFORMATION
  Report Type: 
  Country: None (occurrence: None)
  Receive Date: 20120129
  Receipt Date: 20110927
  Transmission Date: 20120608
  Serious: No
  Sender: FDA-Public Use
  Company Number: US-ABBOTT-11P-163-0857995-00

PATIENT
  Sex: Male
  Weight: 90.8 kg

DRUGS (7)
  1. HUMIRA [Suspect]
  2. CELEBREX [Concomitant]
     Indication: OSTEOARTHRITIS
  3. HUMIRA [Suspect]
     Dates: start: 20110801
  4. PREDNISONE TAB [Concomitant]
     Indication: CROHN'S DISEASE
  5. HUMIRA [Suspect]
     Indication: CROHN'S DISEASE
     Dates: start: 20110401, end: 20110401
  6. HUMIRA [Suspect]
     Indication: OSTEOARTHRITIS
  7. AZULFIDINE [Concomitant]
     Indication: CROHN'S DISEASE

REACTIONS (4)
  - DIARRHOEA [None]
  - PAIN [None]
  - DRUG EFFECT DECREASED [None]
  - BURNING SENSATION [None]
